FAERS Safety Report 9578039 (Version 1)
Quarter: 2013Q4

REPORT INFORMATION
  Report Type: Spontaneous
  Country: US (occurrence: US)
  Receive Date: 20131001
  Receipt Date: 20131001
  Transmission Date: 20140711
  Serious: No
  Sender: FDA-Public Use
  Company Number: US-AMGEN-USASP2013011036

PATIENT
  Sex: Female
  Weight: 81.63 kg

DRUGS (16)
  1. ENBREL [Suspect]
     Indication: RHEUMATOID ARTHRITIS
     Dosage: 50 MG, ONCE A WEEK
     Route: 058
  2. OXYCONTIN [Concomitant]
     Dosage: 40 MG, CR
  3. ALBUTEROL                          /00139501/ [Concomitant]
     Dosage: 90 MUG, UNK
  4. WELLBUTRIN [Concomitant]
     Dosage: 150 MG, SR
  5. HYDROCHLOROTH [Concomitant]
     Dosage: 25 MG, UNK
  6. ARAVA [Concomitant]
     Dosage: 20 MG, UNK
  7. REMERON [Concomitant]
     Dosage: 45 MG, UNK
  8. REQUIP [Concomitant]
     Dosage: 1 MG, UNK
  9. VITAMIN D3 [Concomitant]
     Dosage: 10000 UNIT, UNK
  10. LEXAPRO [Concomitant]
     Dosage: 10 MG, UNK
  11. PROTONIX [Concomitant]
     Dosage: 20 MG, UNK
  12. ASPIRIN LOW [Concomitant]
     Dosage: 81 MG, EC
  13. CLONAZEPAM [Concomitant]
     Dosage: 0.5 MG, UNK
  14. MULTIVITAMINS, PLAIN [Concomitant]
     Dosage: UNK
  15. BIOTIN [Concomitant]
     Dosage: 5 MG, UNK
  16. FOLIC ACID [Concomitant]
     Dosage: 1 MG, UNK

REACTIONS (1)
  - Drug effect decreased [Unknown]
